FAERS Safety Report 8749089 (Version 2)
Quarter: 2012Q4

REPORT INFORMATION
  Report Type: Spontaneous
  Country: JP (occurrence: None)
  Receive Date: 20120808
  Receipt Date: 20120928
  Transmission Date: 20130627
  Serious: Yes (Hospitalization)
  Sender: FDA-Public Use
  Company Number: AE-SPE-2012-005

PATIENT
  Age: 3 Year
  Sex: Male

DRUGS (2)
  1. CEFDITOREN PIVOXIL [Suspect]
     Indication: PHARYNGITIS STREPTOCOCCAL
     Dosage: PO
     Route: 048
     Dates: start: 20120526, end: 20120530
  2. CEFDITOREN PIVOXIL [Suspect]
     Dosage: PO
     Route: 048
     Dates: start: 20120526, end: 20120530

REACTIONS (6)
  - Hypoglycaemia [None]
  - Vomiting [None]
  - Asthenia [None]
  - Decreased appetite [None]
  - White blood cell count increased [None]
  - Carnitine deficiency [None]
